FAERS Safety Report 17424697 (Version 2)
Quarter: 2020Q2

REPORT INFORMATION
  Report Type: Spontaneous
  Country: US (occurrence: US)
  Receive Date: 20200217
  Receipt Date: 20200622
  Transmission Date: 20200713
  Serious: No
  Sender: FDA-Public Use
  Company Number: US-009507513-2002USA005185

PATIENT
  Age: 34 Year
  Sex: Female

DRUGS (15)
  1. MAXALT [Suspect]
     Active Substance: RIZATRIPTAN BENZOATE
     Dosage: 1 DOSAGE FORM
     Route: 048
     Dates: start: 20190507
  2. ACETAMINOPHEN (+) BUTALBITAL [Suspect]
     Active Substance: ACETAMINOPHEN\BUTALBITAL
     Dosage: STRENGTH: 50.325.40 (UNITS NOT PROVIDED)
     Dates: start: 201911
  3. DIPHENHYDRAMINE. [Suspect]
     Active Substance: DIPHENHYDRAMINE
     Dosage: 25 MG EACH, 1 BOTH TIMES (2)
     Dates: start: 20190506
  4. PEPTO-BISMOL [Suspect]
     Active Substance: BISMUTH SUBSALICYLATE
     Dosage: 262 MG X 2; DOSE 1 (UNITS NOT SPECIFIED)
     Dates: start: 20190501
  5. ACETAMINOPHEN. [Suspect]
     Active Substance: ACETAMINOPHEN
     Dosage: 500 MILLIGRAM, 1 DOSE
     Dates: start: 20190501
  6. NAPROXEN. [Suspect]
     Active Substance: NAPROXEN
     Dosage: 500 MILLIGRAM, 1 DOSAGE FORM EACH DAY (3)
     Dates: start: 20190427
  7. VALACYCLOVIR HYDROCHLORIDE. [Suspect]
     Active Substance: VALACYCLOVIR HYDROCHLORIDE
     Dosage: NUMBER FO DOSES TAKEN: 22
     Dates: start: 20191230, end: 20200122
  8. REGLAN [Suspect]
     Active Substance: METOCLOPRAMIDE HYDROCHLORIDE
     Dosage: UNK
     Dates: start: 20190829
  9. DIPHENHYDRAMINE. [Suspect]
     Active Substance: DIPHENHYDRAMINE
     Dosage: 25 MG EACH, 1 BOTH TIMES (2)
     Dates: start: 20190508
  10. NAPROXEN. [Suspect]
     Active Substance: NAPROXEN
     Dosage: 500 MILLIGRAM, 1 DOSAGE FORM EACH DAY (3)
     Dates: start: 20190419
  11. NAPROXEN. [Suspect]
     Active Substance: NAPROXEN
     Dosage: 500 MILLIGRAM, 1 DOSAGE FORM EACH DAY (3)
     Dates: start: 20190506
  12. IRON (UNSPECIFIED) (+) MINERALS (UNSPECIFIED) (+) VITAMINS (UNSPECIFIE [Suspect]
     Active Substance: IRON\MINERALS\VITAMINS
     Dosage: UNK
  13. XANAX [Suspect]
     Active Substance: ALPRAZOLAM
     Dosage: 0.5 MILLIGRAM AND 2 DOSES
     Dates: start: 20190430
  14. MAXALT [Suspect]
     Active Substance: RIZATRIPTAN BENZOATE
     Dosage: 1 DOSAGE FORM
     Route: 048
     Dates: start: 20190430
  15. XANAX [Suspect]
     Active Substance: ALPRAZOLAM
     Dosage: 0.5 MILLIGRAM AND 2 DOSES
     Dates: start: 20190502

REACTIONS (1)
  - Maternal exposure during pregnancy [Recovered/Resolved]

NARRATIVE: CASE EVENT DATE: 20190503
